FAERS Safety Report 13791417 (Version 4)
Quarter: 2018Q1

REPORT INFORMATION
  Report Type: Spontaneous
  Country: JP (occurrence: JP)
  Receive Date: 20170725
  Receipt Date: 20180219
  Transmission Date: 20180508
  Serious: Yes (Life-Threatening, Hospitalization, Other)
  Sender: FDA-Public Use
  Company Number: JP-009507513-1707JPN001067J

PATIENT
  Age: 85 Year
  Sex: Male
  Weight: 61 kg

DRUGS (1)
  1. JANUVIA [Suspect]
     Active Substance: SITAGLIPTIN PHOSPHATE
     Indication: DIABETES MELLITUS
     Dosage: 50 MG, QD
     Route: 048
     Dates: start: 20120801, end: 20170608

REACTIONS (5)
  - Volvulus [Recovered/Resolved]
  - Duodenal ulcer [Recovered/Resolved]
  - Blood pressure decreased [Recovered/Resolved]
  - Pseudomembranous colitis [Recovered/Resolved]
  - Intestinal obstruction [Recovered/Resolved]

NARRATIVE: CASE EVENT DATE: 20170708
